FAERS Safety Report 7458726-1 (Version None)
Quarter: 2011Q2

REPORT INFORMATION
  Report Type: 
  Country: None (occurrence: None)
  Receive Date: 20110504
  Receipt Date: 20110428
  Transmission Date: 20111010
  Serious: Yes (Other)
  Sender: FDA-Public Use
  Company Number: KR-B.I. PHARMACEUTICALS,INC./RIDGEFIELD-2011-DE-02784GD

PATIENT
  Age: 42 Year
  Sex: Female

DRUGS (1)
  1. ZANTAC [Suspect]
     Indication: DYSPEPSIA
     Dosage: 150 MG
     Route: 048

REACTIONS (7)
  - URTICARIA [None]
  - SNEEZING [None]
  - DYSPNOEA [None]
  - ANAPHYLACTIC REACTION [None]
  - EYELID OEDEMA [None]
  - ANGIOEDEMA [None]
  - HYPERSENSITIVITY [None]
